FAERS Safety Report 10528773 (Version 1)
Quarter: 2014Q4

REPORT INFORMATION
  Report Type: Spontaneous
  Country: GB (occurrence: GB)
  Receive Date: 20141020
  Receipt Date: 20141020
  Transmission Date: 20150528
  Serious: Yes (Hospitalization)
  Sender: FDA-Public Use
  Company Number: GB-TEVA-515188ISR

PATIENT
  Age: 58 Year
  Sex: Female

DRUGS (6)
  1. OMEPRAZOLE. [Concomitant]
     Active Substance: OMEPRAZOLE
     Dosage: 20 MILLIGRAM DAILY;
  2. WARFARIN [Suspect]
     Active Substance: WARFARIN
     Indication: KNEE OPERATION
     Dosage: AS PER INTERNATIONAL NORMALISED RATIO
     Route: 048
     Dates: start: 20140915, end: 20140922
  3. SALBUTAMOL [Concomitant]
     Active Substance: ALBUTEROL
     Route: 055
  4. CEFUROXIME. [Concomitant]
     Active Substance: CEFUROXIME
     Dosage: 250 MILLIGRAM DAILY;
     Dates: start: 20140926
  5. PARACETAMOL [Concomitant]
     Active Substance: ACETAMINOPHEN
     Indication: KNEE OPERATION
     Dosage: 4 GRAM DAILY;
  6. QVAR [Concomitant]
     Active Substance: BECLOMETHASONE DIPROPIONATE
     Dosage: MORNING, 1 DOSE = 100 MICROGRAMS
     Route: 055

REACTIONS (2)
  - Headache [Recovering/Resolving]
  - Liver function test abnormal [Recovering/Resolving]

NARRATIVE: CASE EVENT DATE: 20140916
